FAERS Safety Report 23052468 (Version 1)
Quarter: 2023Q4

REPORT INFORMATION
  Report Type: Spontaneous
  Country: IN (occurrence: None)
  Receive Date: 20231011
  Receipt Date: 20231011
  Transmission Date: 20240109
  Serious: Yes (Other)
  Sender: FDA-Public Use
  Company Number: IN-Unichem Pharmaceuticals (USA) Inc-UCM202310-001253

PATIENT
  Age: 5 Year
  Sex: Female

DRUGS (1)
  1. DIVALPROEX SODIUM [Suspect]
     Active Substance: DIVALPROEX SODIUM
     Indication: Tonic convulsion
     Dosage: UNKNOWN

REACTIONS (2)
  - Status epilepticus [Recovered/Resolved]
  - Hyperammonaemic encephalopathy [Unknown]
